FAERS Safety Report 20525919 (Version 3)
Quarter: 2022Q2

REPORT INFORMATION
  Report Type: Report from Study
  Country: CA (occurrence: CA)
  Receive Date: 20220228
  Receipt Date: 20220609
  Transmission Date: 20220721
  Serious: Yes (Other)
  Sender: FDA-Public Use
  Company Number: CA-JNJFOC-20220254107

PATIENT
  Age: 16 Year
  Sex: Male
  Weight: 56 kg

DRUGS (2)
  1. REMICADE [Suspect]
     Active Substance: INFLIXIMAB
     Indication: Crohn^s disease
     Route: 041
     Dates: start: 20200429
  2. REMICADE [Suspect]
     Active Substance: INFLIXIMAB
     Dosage: PATIENT HAD LAST INFUSION ON 20-APR-2022.?ON 01-JUN-2022, THE PATIENT RECEIVED 17TH INFLIXIMAB RECOM
     Route: 041
     Dates: start: 20220223

REACTIONS (4)
  - Crohn^s disease [Not Recovered/Not Resolved]
  - General physical health deterioration [Unknown]
  - Influenza [Recovered/Resolved]
  - Ear infection [Recovered/Resolved]

NARRATIVE: CASE EVENT DATE: 20220201
